FAERS Safety Report 10699641 (Version 2)
Quarter: 2015Q1

REPORT INFORMATION
  Report Type: Spontaneous
  Country: FR (occurrence: FR)
  Receive Date: 20150109
  Receipt Date: 20150123
  Transmission Date: 20150721
  Serious: Yes (Hospitalization)
  Sender: FDA-Public Use
  Company Number: FR-BIOGENIDEC-2015BI000562

PATIENT
  Age: 44 Year
  Sex: Female

DRUGS (5)
  1. RIVOTRIL [Concomitant]
     Active Substance: CLONAZEPAM
  2. BOTOX [Concomitant]
     Active Substance: ONABOTULINUMTOXINA
     Indication: BLADDER DISORDER
  3. LIORESAL [Concomitant]
     Active Substance: BACLOFEN
  4. FAMPYRA [Suspect]
     Active Substance: DALFAMPRIDINE
     Indication: GAIT DISTURBANCE
     Dates: start: 20130524, end: 20140218
  5. SEROPLEX [Concomitant]
     Active Substance: ESCITALOPRAM OXALATE

REACTIONS (3)
  - Confusional state [Recovered/Resolved]
  - Urinary tract infection [Unknown]
  - Seizure [Recovered/Resolved]

NARRATIVE: CASE EVENT DATE: 20140217
